FAERS Safety Report 9926811 (Version 1)
Quarter: 2014Q1

REPORT INFORMATION
  Report Type: Spontaneous
  Country: US (occurrence: US)
  Receive Date: 20140226
  Receipt Date: 20140226
  Transmission Date: 20141002
  Serious: No
  Sender: FDA-Public Use
  Company Number: US-AMGEN-USASP2013079433

PATIENT
  Age: 57 Year
  Sex: Female

DRUGS (12)
  1. ENBREL [Suspect]
     Indication: PRODUCT USED FOR UNKNOWN INDICATION
     Dosage: 50 MG/ML, QWK
     Route: 058
  2. METOPROLOL [Concomitant]
     Indication: BLOOD PRESSURE
     Dosage: 25 MG ER
  3. METHOTREXATE [Concomitant]
     Dosage: 1 GM, UNK
  4. OMEPRAZOLE [Concomitant]
     Dosage: 20 MG, UNK
  5. FOLIC ACID [Concomitant]
     Dosage: UNK
  6. CALCIUM                            /07357001/ [Concomitant]
     Dosage: UNK
  7. IBUPROFEN [Concomitant]
     Dosage: 200 MG, UNK
  8. ALBUTEROL                          /00139501/ [Concomitant]
     Dosage: 0.5 %, UNK
  9. FLONASE                            /00908302/ [Concomitant]
     Dosage: 0.05 %, UNK
  10. CRESTOR [Concomitant]
     Dosage: 10 MG, UNK
  11. VALSARTAN AND HYDROCHLOROTHIAZIDE [Concomitant]
     Dosage: 160-12.5
  12. CITALOPRAM [Concomitant]
     Dosage: 10 MG, UNK

REACTIONS (2)
  - Injection site bruising [Unknown]
  - Injection site pain [Unknown]
